FAERS Safety Report 9356285 (Version 1)
Quarter: 2013Q2

REPORT INFORMATION
  Report Type: Spontaneous
  Country: FR (occurrence: FR)
  Receive Date: 20130619
  Receipt Date: 20130619
  Transmission Date: 20140414
  Serious: Yes (Other)
  Sender: FDA-Public Use
  Company Number: FR-BRISTOL-MYERS SQUIBB COMPANY-19004258

PATIENT
  Age: 48 Year
  Sex: Female
  Weight: 103 kg

DRUGS (2)
  1. ORENCIA FOR INJ [Suspect]
     Indication: RHEUMATOID ARTHRITIS
     Dosage: IST-1G-14OC10,1G-28OC10,750MG-12NO10,750MG-9DEC10,750MG-10JA11-5THCYC?24MA11-750MG,16MY11-8TH-1G
     Route: 042
     Dates: start: 20101014, end: 20110517
  2. ENBREL [Suspect]
     Indication: RHEUMATOID ARTHRITIS
     Route: 058
     Dates: end: 201010

REACTIONS (2)
  - Vasculitis [Recovering/Resolving]
  - IgA nephropathy [Recovering/Resolving]
